FAERS Safety Report 21571386 (Version 2)
Quarter: 2022Q4

REPORT INFORMATION
  Report Type: Report from Study
  Country: US (occurrence: US)
  Receive Date: 20221109
  Receipt Date: 20221219
  Transmission Date: 20230113
  Serious: Yes (Hospitalization)
  Sender: FDA-Public Use
  Company Number: US-BIOVITRUM-2022US12965

PATIENT
  Sex: Female

DRUGS (1)
  1. SYNAGIS [Suspect]
     Active Substance: PALIVIZUMAB
     Indication: Low birth weight baby
     Dosage: 50MG/0.5ML AND 11MG/ML, 100 MG/ML
     Dates: start: 20221012

REACTIONS (3)
  - COVID-19 [Unknown]
  - Dehydration [Unknown]
  - Rash [Unknown]
